FAERS Safety Report 20903502 (Version 3)
Quarter: 2024Q2

REPORT INFORMATION
  Report Type: Spontaneous
  Country: US (occurrence: US)
  Receive Date: 20220602
  Receipt Date: 20240522
  Transmission Date: 20240716
  Serious: Yes (Other)
  Sender: FDA-Public Use
  Company Number: US-JNJFOC-20220558118

PATIENT
  Age: 57 Year
  Sex: Female
  Weight: 68 kg

DRUGS (22)
  1. OPSUMIT [Suspect]
     Active Substance: MACITENTAN
     Indication: Product used for unknown indication
     Route: 048
     Dates: end: 202208
  2. TREPROSTINIL [Suspect]
     Active Substance: TREPROSTINIL
     Indication: Pulmonary arterial hypertension
     Route: 048
     Dates: start: 20180316
  3. TREPROSTINIL [Suspect]
     Active Substance: TREPROSTINIL
     Route: 048
  4. TREPROSTINIL [Suspect]
     Active Substance: TREPROSTINIL
     Route: 048
  5. TREPROSTINIL [Suspect]
     Active Substance: TREPROSTINIL
     Route: 048
  6. TREPROSTINIL [Suspect]
     Active Substance: TREPROSTINIL
     Route: 048
  7. TREPROSTINIL [Suspect]
     Active Substance: TREPROSTINIL
     Route: 048
  8. TREPROSTINIL [Suspect]
     Active Substance: TREPROSTINIL
     Route: 048
  9. TREPROSTINIL [Suspect]
     Active Substance: TREPROSTINIL
     Route: 048
  10. LETAIRIS [Suspect]
     Active Substance: AMBRISENTAN
     Indication: Product used for unknown indication
     Route: 065
  11. AMBRISENTAN [Suspect]
     Active Substance: AMBRISENTAN
     Indication: Product used for unknown indication
     Route: 065
  12. ADEMPAS [Concomitant]
     Active Substance: RIOCIGUAT
  13. FAMOTIDINE [Concomitant]
     Active Substance: FAMOTIDINE
  14. SYNTHROID [Concomitant]
     Active Substance: LEVOTHYROXINE SODIUM
  15. ALDACTONE [Concomitant]
     Active Substance: SPIRONOLACTONE
  16. ZOLOFT [Concomitant]
     Active Substance: SERTRALINE HYDROCHLORIDE
  17. LIPITOR [Concomitant]
     Active Substance: ATORVASTATIN CALCIUM
  18. TRAMADOL HYDROCHLORIDE [Concomitant]
     Active Substance: TRAMADOL HYDROCHLORIDE
  19. PROMETHAZINE HYDROCHLORIDE [Concomitant]
     Active Substance: PROMETHAZINE HYDROCHLORIDE
  20. OXYGEN [Concomitant]
     Active Substance: OXYGEN
  21. CYCLOBENZAPRINE HYDROCHLORIDE [Concomitant]
     Active Substance: CYCLOBENZAPRINE HYDROCHLORIDE
  22. PLAVIX [Concomitant]
     Active Substance: CLOPIDOGREL BISULFATE

REACTIONS (5)
  - Oxygen saturation decreased [Unknown]
  - Hypoacusis [Unknown]
  - Oedema peripheral [Recovering/Resolving]
  - Hypotension [Unknown]
  - Dehydration [Unknown]
